FAERS Safety Report 6589296-8 (Version None)
Quarter: 2010Q1

REPORT INFORMATION
  Report Type: 
  Country: None (occurrence: None)
  Receive Date: 20100205
  Receipt Date: 20100126
  Transmission Date: 20100710
  Serious: Yes (Hospitalization)
  Sender: FDA-Public Use
  Company Number: CIP09003584

PATIENT
  Age: 87 Year
  Sex: Female

DRUGS (7)
  1. RISEDRONATE SODIUM [Suspect]
     Indication: OSTEOPOROSIS
     Dosage: 2.5 MG DAILY, ORAL
     Route: 048
     Dates: start: 20030101, end: 20060928
  2. ALFAROL (ALFACALCIDOL) [Concomitant]
  3. AMLODIPINE BESYLATE [Concomitant]
  4. TECHNIS (IFENPRODIL TARTRATE) [Concomitant]
  5. KENTON /00110502/ (TOCOPHERYL ACETATE) [Concomitant]
  6. GASCON (DIMETICONE) [Concomitant]
  7. CIMETIDINE HCL [Concomitant]

REACTIONS (6)
  - BLOOD ALKALINE PHOSPHATASE INCREASED [None]
  - FEMUR FRACTURE [None]
  - FRACTURE DISPLACEMENT [None]
  - PAIN IN EXTREMITY [None]
  - STRESS [None]
  - STRESS FRACTURE [None]
